FAERS Safety Report 9201120 (Version 2)
Quarter: 2013Q2

REPORT INFORMATION
  Report Type: Spontaneous
  Country: RU (occurrence: RU)
  Receive Date: 20130401
  Receipt Date: 20130528
  Transmission Date: 20140414
  Serious: Yes (Other)
  Sender: FDA-Public Use
  Company Number: RU-JNJFOC-20130315767

PATIENT
  Sex: Female

DRUGS (7)
  1. DARUNAVIR [Suspect]
     Indication: HIV INFECTION
     Route: 048
     Dates: start: 201205
  2. ETRAVIRINE [Suspect]
     Indication: HIV INFECTION
     Route: 048
     Dates: start: 20120501
  3. KIVEXA [Suspect]
     Indication: HIV INFECTION
     Route: 048
     Dates: start: 20120501
  4. RITONAVIR [Suspect]
     Indication: HIV INFECTION
     Route: 048
     Dates: start: 201205
  5. EPIVIR [Suspect]
     Indication: HIV INFECTION
     Route: 048
     Dates: start: 20120201, end: 201205
  6. NIKAVIR [Suspect]
     Indication: HIV INFECTION
     Route: 048
     Dates: start: 20120201, end: 201205
  7. KALETRA [Suspect]
     Indication: HIV INFECTION
     Route: 048
     Dates: start: 20120201, end: 201205

REACTIONS (5)
  - Hepatitis B [Unknown]
  - Colitis [Unknown]
  - Anaemia [Unknown]
  - Proteinuria [Unknown]
  - Exposure during pregnancy [Recovered/Resolved]
